FAERS Safety Report 14307234 (Version 2)
Quarter: 2017Q4

REPORT INFORMATION
  Report Type: Spontaneous
  Country: GB (occurrence: GB)
  Receive Date: 20171220
  Receipt Date: 20171230
  Transmission Date: 20180321
  Serious: Yes (Other)
  Sender: FDA-Public Use
  Company Number: GB-CIPLA LTD.-2017GB24659

PATIENT

DRUGS (6)
  1. ALFACALCIDOL [Suspect]
     Active Substance: ALFACALCIDOL
     Indication: HYPERPARATHYROIDISM
     Dosage: 1500 NG, PER DAY (300NG/KG)
     Route: 065
  2. CALCIUM GLUCONATE. [Suspect]
     Active Substance: CALCIUM GLUCONATE
     Indication: HYPOCALCAEMIC SEIZURE
     Dosage: 0.11MMOL/KG
     Route: 040
  3. CALCIUM ACETATE. [Suspect]
     Active Substance: CALCIUM ACETATE
     Dosage: 48 MMOL, PER DAY
     Route: 048
  4. CALCIUM GLUCONATE. [Suspect]
     Active Substance: CALCIUM GLUCONATE
     Dosage: 1-2 MMOL/KG/DAY
  5. CALCIUM ACETATE. [Suspect]
     Active Substance: CALCIUM ACETATE
     Indication: HYPERPARATHYROIDISM
     Dosage: 12 MMOL, PER DAY
     Route: 048
  6. ALFACALCIDOL [Suspect]
     Active Substance: ALFACALCIDOL
     Dosage: 400 NG, PER DAY (80 NG/KG)
     Route: 065

REACTIONS (3)
  - Hypercalciuria [Recovering/Resolving]
  - Blood calcium decreased [Recovering/Resolving]
  - Hypocalcaemic seizure [Recovering/Resolving]
